FAERS Safety Report 8799350 (Version 2)
Quarter: 2012Q4

REPORT INFORMATION
  Report Type: 
  Country: TH (occurrence: TH)
  Receive Date: 20120920
  Receipt Date: 20120927
  Transmission Date: 20130627
  Serious: Yes (Other)
  Sender: FDA-Public Use
  Company Number: TH-BAXTER-2012BAX016920

PATIENT

DRUGS (1)
  1. TISSEEL FROZEN [Suspect]
     Indication: WOUND CLOSURE
     Dosage: 2 cc
     Route: 061
     Dates: start: 20120905, end: 20120905

REACTIONS (3)
  - Drug ineffective [Unknown]
  - Cerebrospinal fluid leakage [Unknown]
  - Liquid product physical issue [None]
